FAERS Safety Report 22640339 (Version 1)
Quarter: 2023Q2

REPORT INFORMATION
  Report Type: Spontaneous
  Country: AT (occurrence: AT)
  Receive Date: 20230626
  Receipt Date: 20230626
  Transmission Date: 20230722
  Serious: Yes (Other)
  Sender: FDA-Public Use
  Company Number: AT-GLPHARMA-23.0663

PATIENT
  Age: 77 Year
  Sex: Female
  Weight: 51.9 kg

DRUGS (5)
  1. LISINOPRIL AND HYDROCHLOROTHIAZIDE [Suspect]
     Active Substance: HYDROCHLOROTHIAZIDE\LISINOPRIL
     Indication: Product used for unknown indication
     Dosage: UNK, (1/2 TABLET IN THE MORNINGS, 1/2 TABLET IN THE EVENINGS WAS PRESCRIBED AND TAKEN AT THE BEGIN O
     Route: 065
  2. LISINOPRIL AND HYDROCHLOROTHIAZIDE [Suspect]
     Active Substance: HYDROCHLOROTHIAZIDE\LISINOPRIL
     Dosage: 1 TOTAL, QD, (1 TABLET PER DAY. 1 PACKAGE OF LISINOPRIL HCT 20/12.5 MG HAS BEEN TAKEN SO FAR)
     Route: 065
  3. BISOPROLOL FUMARATE [Concomitant]
     Active Substance: BISOPROLOL FUMARATE
     Indication: Product used for unknown indication
     Dosage: UNK, (~2 1/2 IN THE MORNINGS, 2 1/2 IN THE EVENINGS)
     Route: 065
  4. VIMPAT [Concomitant]
     Active Substance: LACOSAMIDE
     Indication: Epilepsy
     Dosage: UNK, (EVERY 6 DAYS 1 TABLET)
     Route: 065
     Dates: start: 2015
  5. XARELTO [Concomitant]
     Active Substance: RIVAROXABAN
     Indication: Product used for unknown indication
     Dosage: 20 MG, QD
     Route: 065

REACTIONS (24)
  - Haemorrhage [Unknown]
  - Angina pectoris [Not Recovered/Not Resolved]
  - Blood pressure fluctuation [Not Recovered/Not Resolved]
  - Alopecia [Not Recovered/Not Resolved]
  - Asthenopia [Not Recovered/Not Resolved]
  - Cough [Not Recovered/Not Resolved]
  - Gingival recession [Not Recovered/Not Resolved]
  - Gait disturbance [Not Recovered/Not Resolved]
  - Night sweats [Not Recovered/Not Resolved]
  - Visual impairment [Not Recovered/Not Resolved]
  - Eye swelling [Unknown]
  - Purulence [Not Recovered/Not Resolved]
  - Arthralgia [Not Recovered/Not Resolved]
  - Headache [Not Recovered/Not Resolved]
  - Oropharyngeal pain [Not Recovered/Not Resolved]
  - Epistaxis [Recovered/Resolved]
  - Swollen tongue [Unknown]
  - Dental restoration failure [Not Recovered/Not Resolved]
  - Ulcer [Not Recovered/Not Resolved]
  - Nausea [Not Recovered/Not Resolved]
  - Dizziness [Not Recovered/Not Resolved]
  - Swelling face [Unknown]
  - Product substitution issue [Not Recovered/Not Resolved]
  - Intentional product use issue [Not Recovered/Not Resolved]

NARRATIVE: CASE EVENT DATE: 20230602
